FAERS Safety Report 6421356-4 (Version None)
Quarter: 2009Q4

REPORT INFORMATION
  Report Type: 
  Country: None (occurrence: None)
  Receive Date: 20091030
  Receipt Date: 20091022
  Transmission Date: 20100525
  Serious: Yes (Other)
  Sender: FDA-Public Use
  Company Number: PHEH2009US08975

PATIENT

DRUGS (3)
  1. EXELON [Suspect]
     Indication: AMNESIA
     Dosage: UNK
     Dates: start: 20030101
  2. PAXIL [Concomitant]
     Dosage: UNK, UNK
     Route: 065
  3. PROVIGIL [Concomitant]
     Dosage: UNK, UNK
     Route: 065

REACTIONS (2)
  - CSF SHUNT OPERATION [None]
  - HEAD DISCOMFORT [None]
